FAERS Safety Report 11285304 (Version 1)
Quarter: 2015Q3

REPORT INFORMATION
  Report Type: Spontaneous
  Country: US (occurrence: US)
  Receive Date: 20150720
  Receipt Date: 20150720
  Transmission Date: 20151125
  Serious: No
  Sender: FDA-Public Use
  Company Number: US-GLAXOSMITHKLINE-US2015101396

PATIENT
  Sex: Male

DRUGS (1)
  1. IMITREX [Suspect]
     Active Substance: SUMATRIPTAN\SUMATRIPTAN SUCCINATE
     Indication: CLUSTER HEADACHE
     Dosage: 6 MG, PRN
     Route: 042
     Dates: start: 2000

REACTIONS (1)
  - Injection site pain [Recovered/Resolved]

NARRATIVE: CASE EVENT DATE: 2000
